FAERS Safety Report 20569664 (Version 3)
Quarter: 2022Q1

REPORT INFORMATION
  Report Type: Spontaneous
  Country: JP (occurrence: JP)
  Receive Date: 20220309
  Receipt Date: 20220328
  Transmission Date: 20220424
  Serious: Yes (Death, Other)
  Sender: FDA-Public Use
  Company Number: JP-TAKEDA-2022TJP028202

PATIENT
  Age: 74 Year
  Sex: Male

DRUGS (2)
  1. FEIBA NF [Suspect]
     Active Substance: ANTI-INHIBITOR COAGULANT COMPLEX
     Indication: Acquired haemophilia
     Dosage: 4000 INTERNATIONAL UNIT, QD
     Route: 042
     Dates: start: 20220208, end: 20220209
  2. FEIBA NF [Suspect]
     Active Substance: ANTI-INHIBITOR COAGULANT COMPLEX
     Dosage: 4000 INTERNATIONAL UNIT, QD
     Route: 042
     Dates: start: 20220301, end: 20220301

REACTIONS (3)
  - Acquired haemophilia [Fatal]
  - Condition aggravated [Fatal]
  - Haemorrhage [Unknown]

NARRATIVE: CASE EVENT DATE: 20220301
